FAERS Safety Report 16971462 (Version 1)
Quarter: 2019Q4

REPORT INFORMATION
  Report Type: Spontaneous
  Country: DE (occurrence: DE)
  Receive Date: 20191029
  Receipt Date: 20191029
  Transmission Date: 20200122
  Serious: Yes (Other)
  Sender: FDA-Public Use
  Company Number: DE-DSJP-DSE-2019-140464

PATIENT

DRUGS (2)
  1. VOCADO [Suspect]
     Active Substance: AMLODIPINE BESYLATE\OLMESARTAN MEDOXOMIL
     Dosage: 10/2.5 MG , QD
     Route: 048
     Dates: end: 2019
  2. VOCADO [Suspect]
     Active Substance: AMLODIPINE BESYLATE\OLMESARTAN MEDOXOMIL
     Indication: HYPERTENSION
     Dosage: 20/5 MG, QD
     Route: 048
     Dates: start: 2013

REACTIONS (6)
  - Visual impairment [Unknown]
  - Urinary hesitation [Unknown]
  - Heart rate irregular [Unknown]
  - Cataract [Unknown]
  - Photophobia [Unknown]
  - Wrong technique in product usage process [Recovered/Resolved]

NARRATIVE: CASE EVENT DATE: 2017
